FAERS Safety Report 12323916 (Version 2)
Quarter: 2016Q2

REPORT INFORMATION
  Report Type: Report from Study
  Country: AR (occurrence: AR)
  Receive Date: 20160502
  Receipt Date: 20160610
  Transmission Date: 20160815
  Serious: Yes (Other)
  Sender: FDA-Public Use
  Company Number: AR-ABBVIE-16K-007-1618059-00

PATIENT
  Age: 40 Year
  Sex: Female

DRUGS (1)
  1. HUMIRA [Suspect]
     Active Substance: ADALIMUMAB
     Indication: PSORIATIC ARTHROPATHY
     Route: 058
     Dates: start: 20150811

REACTIONS (3)
  - Ingrowing nail [Recovering/Resolving]
  - Psoriasis [Recovering/Resolving]
  - Systemic immune activation [Unknown]

NARRATIVE: CASE EVENT DATE: 2016
